FAERS Safety Report 5150409-6 (Version None)
Quarter: 2006Q4

REPORT INFORMATION
  Report Type: 
  Country: None (occurrence: None)
  Receive Date: 20061114
  Receipt Date: 20030908
  Transmission Date: 20070319
  Serious: Yes (Other)
  Sender: FDA-Public Use
  Company Number: US-ROCHE-346612

PATIENT
  Age: 53 Year
  Sex: Female
  Weight: 60 kg

DRUGS (2)
  1. DACLIZUMAB [Suspect]
     Indication: ASTHMA
     Dosage: TOTAL OF 7 DOSES. SUBSEQUENT DOSES.
     Route: 042
     Dates: start: 20020308, end: 20020531
  2. DACLIZUMAB [Suspect]
     Dosage: LOADING DOSE.
     Route: 042

REACTIONS (3)
  - BREAST CANCER [None]
  - BREAST CANCER FEMALE [None]
  - HEPATITIS C VIRUS [None]
